FAERS Safety Report 16879298 (Version 1)
Quarter: 2019Q4

REPORT INFORMATION
  Report Type: Spontaneous
  Country: CA (occurrence: CA)
  Receive Date: 20191003
  Receipt Date: 20191003
  Transmission Date: 20200122
  Serious: Yes (Other)
  Sender: FDA-Public Use
  Company Number: CA-SAMSUNG BIOEPIS-SB-2019-28850

PATIENT
  Age: 59 Year
  Sex: Female

DRUGS (2)
  1. RIFAMPIN. [Concomitant]
     Active Substance: RIFAMPIN
     Indication: TUBERCULOSIS
     Dosage: UNKNOWN
     Route: 065
  2. INFLIXIMAB [Suspect]
     Active Substance: INFLIXIMAB
     Indication: CROHN^S DISEASE
     Route: 042

REACTIONS (7)
  - Fistula [Unknown]
  - Blood pressure fluctuation [Unknown]
  - Toothache [Unknown]
  - Sunburn [Unknown]
  - Anal abscess [Unknown]
  - Dermatitis [Unknown]
  - Drug ineffective [Unknown]
